FAERS Safety Report 5641674-7 (Version None)
Quarter: 2008Q1

REPORT INFORMATION
  Report Type: 
  Country: None (occurrence: None)
  Receive Date: 20080227
  Receipt Date: 20080204
  Transmission Date: 20080703
  Serious: Yes (Other)
  Sender: FDA-Public Use
  Company Number: DE-SANOFI-SYNTHELABO-A04200800159

PATIENT
  Age: 37 Year
  Sex: Female

DRUGS (2)
  1. OXALIPLATIN [Suspect]
     Indication: COLON CANCER
     Route: 041
     Dates: start: 20070115, end: 20070115
  2. XELODA [Suspect]
     Indication: COLON CANCER
     Dosage: UNK
     Route: 048
     Dates: start: 20060915, end: 20070115

REACTIONS (1)
  - ABORTION SPONTANEOUS [None]
